FAERS Safety Report 24258207 (Version 1)
Quarter: 2024Q3

REPORT INFORMATION
  Report Type: Spontaneous
  Country: US (occurrence: None)
  Receive Date: 20240825
  Receipt Date: 20240825
  Transmission Date: 20241017
  Serious: Yes (Hospitalization)
  Sender: Public
  Company Number: None

PATIENT
  Age: 62 Year
  Sex: Female
  Weight: 92.08 kg

DRUGS (3)
  1. SEMAGLUTIDE [Suspect]
     Active Substance: SEMAGLUTIDE
  2. ASPIRIN [Suspect]
     Active Substance: ASPIRIN
  3. CELEBREX [Suspect]
     Active Substance: CELECOXIB

REACTIONS (4)
  - Upper gastrointestinal haemorrhage [None]
  - Melaena [None]
  - Haemoglobin decreased [None]
  - Gingival bleeding [None]

NARRATIVE: CASE EVENT DATE: 20240821
